FAERS Safety Report 9150491 (Version 1)
Quarter: 2013Q1

REPORT INFORMATION
  Report Type: Spontaneous
  Country: US (occurrence: US)
  Receive Date: 20130308
  Receipt Date: 20130308
  Transmission Date: 20140127
  Serious: No
  Sender: FDA-Public Use
  Company Number: US-ENDO PHARMACEUTICALS INC.-OPCR20121168

PATIENT
  Sex: Male

DRUGS (4)
  1. OPANA ER 30MG [Suspect]
     Indication: SPINAL COLUMN STENOSIS
     Route: 048
     Dates: start: 20120426, end: 20120522
  2. OPANA ER 30MG [Suspect]
     Indication: INTERVERTEBRAL DISC PROTRUSION
  3. OPANA ER [Concomitant]
     Indication: SPINAL COLUMN STENOSIS
     Dosage: UNKNOWN
     Route: 048
     Dates: end: 20120425
  4. OPANA ER [Concomitant]
     Indication: INTERVERTEBRAL DISC PROTRUSION

REACTIONS (3)
  - Medication residue present [Recovered/Resolved]
  - Regurgitation [Recovered/Resolved]
  - Drug ineffective [Recovered/Resolved]
